FAERS Safety Report 14392953 (Version 1)
Quarter: 2018Q1

REPORT INFORMATION
  Report Type: Spontaneous
  Country: US (occurrence: US)
  Receive Date: 20180112
  Receipt Date: 20180112
  Transmission Date: 20180509
  Serious: Yes (Disabling)
  Sender: FDA-Public Use
  Company Number: None

PATIENT
  Age: 37 Year
  Sex: Male
  Weight: 90.45 kg

DRUGS (9)
  1. OXYCONTIN [Suspect]
     Active Substance: OXYCODONE HYDROCHLORIDE
     Indication: NERVE INJURY
     Dosage: ?          QUANTITY:28 TABLET(S);?
     Route: 048
     Dates: start: 20111201, end: 20171201
  2. FLEXERIL [Concomitant]
     Active Substance: CYCLOBENZAPRINE HYDROCHLORIDE
  3. ADDERALL [Concomitant]
     Active Substance: AMPHETAMINE ASPARTATE\AMPHETAMINE SULFATE\DEXTROAMPHETAMINE SACCHARATE\DEXTROAMPHETAMINE SULFATE
  4. IODINE. [Concomitant]
     Active Substance: IODINE
  5. OXYCONTIN [Suspect]
     Active Substance: OXYCODONE HYDROCHLORIDE
     Indication: PAIN
     Dosage: ?          QUANTITY:28 TABLET(S);?
     Route: 048
     Dates: start: 20111201, end: 20171201
  6. A AND D NOS [Concomitant]
     Active Substance: DIMETHICONE\ZINC OXIDE OR PETROLATUM
  7. MAG CHLORIDE [Concomitant]
  8. BIG 3 OXYPOWDER [Concomitant]
  9. COLLOIDAL SILVER PROBIOTICS [Concomitant]

REACTIONS (10)
  - Product formulation issue [None]
  - Nausea [None]
  - Dizziness [None]
  - Chest pain [None]
  - Insomnia [None]
  - Impaired work ability [None]
  - Gastrointestinal disorder [None]
  - Pain [None]
  - Malaise [None]
  - Dyspepsia [None]

NARRATIVE: CASE EVENT DATE: 20111215
